FAERS Safety Report 10329089 (Version 1)
Quarter: 2014Q3

REPORT INFORMATION
  Report Type: Report from Study
  Country: US (occurrence: US)
  Receive Date: 20140721
  Receipt Date: 20140721
  Transmission Date: 20150326
  Serious: Yes (Other)
  Sender: FDA-Public Use
  Company Number: US-ABBVIE-14P-163-1260082-00

PATIENT
  Age: 66 Year
  Sex: Male
  Weight: 118.04 kg

DRUGS (10)
  1. ROPRINIROLE [Concomitant]
     Indication: PRODUCT USED FOR UNKNOWN INDICATION
     Dosage: UNKNOWN
  2. UNKNOWN LOTION [Concomitant]
     Indication: PRODUCT USED FOR UNKNOWN INDICATION
     Dosage: UNKNOWN
  3. TEGRETOL [Concomitant]
     Active Substance: CARBAMAZEPINE
     Indication: PRODUCT USED FOR UNKNOWN INDICATION
     Dosage: UNKNOWN
  4. HUMIRA [Suspect]
     Active Substance: ADALIMUMAB
     Indication: PSORIASIS
  5. SIMVASTATIN. [Concomitant]
     Active Substance: SIMVASTATIN
     Indication: PRODUCT USED FOR UNKNOWN INDICATION
     Dosage: UNKNOWN
  6. LOPERADMIDE [Concomitant]
     Indication: GLAUCOMA
     Dosage: UNKNOWN
  7. LISINOPRIL. [Concomitant]
     Active Substance: LISINOPRIL
     Indication: PRODUCT USED FOR UNKNOWN INDICATION
     Dosage: UNKNOWN
  8. BETAZOL [Concomitant]
     Indication: PRODUCT USED FOR UNKNOWN INDICATION
     Dosage: UNKNOWN
  9. DILATIN [Concomitant]
     Indication: PRODUCT USED FOR UNKNOWN INDICATION
     Dosage: UNKNOWN
  10. UNKNOWN ANTI-DEPRESSION [Concomitant]
     Indication: DEPRESSION
     Dosage: UNKNOWN

REACTIONS (4)
  - Rash [Not Recovered/Not Resolved]
  - Parkinsonism [Not Recovered/Not Resolved]
  - Glaucoma [Unknown]
  - Hyperkeratosis [Unknown]

NARRATIVE: CASE EVENT DATE: 201406
